FAERS Safety Report 13414192 (Version 2)
Quarter: 2017Q2

REPORT INFORMATION
  Report Type: Spontaneous
  Country: US (occurrence: US)
  Receive Date: 20170407
  Receipt Date: 20170420
  Transmission Date: 20170830
  Serious: Yes (Other)
  Sender: FDA-Public Use
  Company Number: US-PFIZER INC-2017147572

PATIENT
  Sex: Female

DRUGS (1)
  1. DEPO-PROVERA [Suspect]
     Active Substance: MEDROXYPROGESTERONE ACETATE
     Dosage: UNK

REACTIONS (5)
  - Abdominal pain upper [Unknown]
  - Thrombosis [Unknown]
  - Breast tenderness [Unknown]
  - Vomiting [Unknown]
  - Fungal infection [Unknown]

NARRATIVE: CASE EVENT DATE: 201704
